FAERS Safety Report 7093355-3 (Version None)
Quarter: 2010Q4

REPORT INFORMATION
  Report Type: 
  Country: None (occurrence: None)
  Receive Date: 20101110
  Receipt Date: 20101104
  Transmission Date: 20110411
  Serious: Yes (Hospitalization)
  Sender: FDA-Public Use
  Company Number: AT-SANOFI-AVENTIS-2010SA063997

PATIENT
  Age: 57 Year
  Sex: Female
  Weight: 72 kg

DRUGS (4)
  1. TAXOTERE [Suspect]
     Indication: GASTRIC CANCER
     Route: 042
     Dates: start: 20101004, end: 20101004
  2. TAXOTERE [Suspect]
     Route: 042
     Dates: start: 20100101, end: 20100101
  3. BEVACIZUMAB [Suspect]
     Indication: GASTRIC CANCER
     Route: 042
     Dates: start: 20100924, end: 20100924
  4. BEVACIZUMAB [Suspect]
     Route: 042
     Dates: start: 20100630, end: 20100630

REACTIONS (3)
  - HYDRONEPHROSIS [None]
  - PYREXIA [None]
  - URINARY TRACT INFECTION [None]
